FAERS Safety Report 25900457 (Version 1)
Quarter: 2025Q4

REPORT INFORMATION
  Report Type: Spontaneous
  Country: JP (occurrence: JP)
  Receive Date: 20251009
  Receipt Date: 20251009
  Transmission Date: 20260117
  Serious: Yes (Death, Other)
  Sender: Onesource Specialty Pharma
  Company Number: JP-STRIDES ARCOLAB LIMITED-2025OS000886

PATIENT
  Age: 73 Year
  Sex: Male

DRUGS (10)
  1. ETOPOSIDE [Suspect]
     Active Substance: ETOPOSIDE
     Indication: Hepatic neuroendocrine tumour
     Dosage: RECEIVED FIRST-LINE REGIMEN WITH ETOPOSIDE
     Route: 065
  2. ETOPOSIDE [Suspect]
     Active Substance: ETOPOSIDE
     Indication: Metastases to lymph nodes
  3. CISPLATIN [Suspect]
     Active Substance: CISPLATIN
     Indication: Hepatic neuroendocrine tumour
     Dosage: RECEIVED FIRST-LINE REGIMEN WITH CISPLATIN
     Route: 065
  4. CISPLATIN [Suspect]
     Active Substance: CISPLATIN
     Indication: Metastases to lymph nodes
     Dosage: RECEIVED SECOND-LINE REGIMEN WITH CISPLATIN
     Route: 065
  5. IRINOTECAN [Suspect]
     Active Substance: IRINOTECAN
     Indication: Hepatic neuroendocrine tumour
     Dosage: RECEIVED SECOND-LINE REGIMEN WITH IRINOTECAN
     Route: 065
  6. IRINOTECAN [Suspect]
     Active Substance: IRINOTECAN
     Indication: Metastases to lymph nodes
  7. CARBOPLATIN [Suspect]
     Active Substance: CARBOPLATIN
     Indication: Hepatic neuroendocrine tumour
     Dosage: RECEIVED FIRST-LINE REGIMEN WITH CARBOPLATIN
     Route: 065
  8. CARBOPLATIN [Suspect]
     Active Substance: CARBOPLATIN
     Indication: Metastases to lymph nodes
     Dosage: RECEIVED SECOND-LINE REGIMEN WITH CARBOPLATIN
     Route: 065
  9. ASPIRIN [Concomitant]
     Active Substance: ASPIRIN
     Indication: Antiplatelet therapy
     Dosage: UNK
     Route: 065
  10. SALINE [Concomitant]
     Active Substance: SODIUM CHLORIDE
     Indication: Gastric mucosal lesion
     Dosage: UNK
     Route: 065

REACTIONS (1)
  - Drug ineffective for unapproved indication [Fatal]
